FAERS Safety Report 15259281 (Version 1)
Quarter: 2018Q3

REPORT INFORMATION
  Report Type: Spontaneous
  Country: US (occurrence: US)
  Receive Date: 20180809
  Receipt Date: 20180809
  Transmission Date: 20181010
  Serious: Yes (Other)
  Sender: FDA-Public Use
  Company Number: US-ANIPHARMA-2018-US-012669

PATIENT
  Age: 50 Year
  Sex: Male

DRUGS (6)
  1. FLUCONAZOLE (NON?SPECIFIC) [Suspect]
     Active Substance: FLUCONAZOLE
     Indication: ORAL CANDIDIASIS
     Dosage: 100 MG DAILY
  2. ETRAVIRINE [Concomitant]
     Active Substance: ETRAVIRINE
     Dosage: 200 MG
  3. TENOFOVIR [Concomitant]
     Active Substance: TENOFOVIR
     Dosage: 25 MG
  4. CEFAZOLIN [Concomitant]
     Active Substance: CEFAZOLIN
  5. DARUNAVIR [Concomitant]
     Active Substance: DARUNAVIR
     Dosage: 600 MG
  6. RITONAVIR. [Concomitant]
     Active Substance: RITONAVIR
     Dosage: 100 MG

REACTIONS (1)
  - Adrenal suppression [Unknown]
